FAERS Safety Report 14778890 (Version 2)
Quarter: 2020Q3

REPORT INFORMATION
  Report Type: Spontaneous
  Country: DE (occurrence: DE)
  Receive Date: 20180419
  Receipt Date: 20200721
  Transmission Date: 20201102
  Serious: Yes (Life-Threatening, Hospitalization, Other)
  Sender: FDA-Public Use
  Company Number: PHHY2016DE161732

PATIENT
  Age: 78 Year
  Sex: Female

DRUGS (7)
  1. MEMANTINE. [Concomitant]
     Active Substance: MEMANTINE
     Indication: DEMENTIA ALZHEIMER^S TYPE
  2. MEMANTINE. [Concomitant]
     Active Substance: MEMANTINE
     Indication: AGITATION
     Dosage: 5 MG, QD
     Route: 065
  3. METHOTREXATE. [Suspect]
     Active Substance: METHOTREXATE
     Indication: RHEUMATOID ARTHRITIS
     Dosage: 5 MG, QW
     Route: 065
  4. PIPAMPERONE [Suspect]
     Active Substance: PIPAMPERONE
     Dosage: 80 MG, BID
     Route: 065
  5. PIPAMPERONE [Suspect]
     Active Substance: PIPAMPERONE
     Dosage: 40 MG, BID
     Route: 065
  6. ZOPICLONE [Interacting]
     Active Substance: ZOPICLONE
     Indication: AGITATION
     Dosage: 7.5 MG, QD
     Route: 065
  7. PIPAMPERONE [Suspect]
     Active Substance: PIPAMPERONE
     Indication: AGITATION
     Dosage: 160 MG, QD
     Route: 065

REACTIONS (2)
  - Hypothermia [Recovered/Resolved]
  - Drug interaction [Unknown]
